FAERS Safety Report 9286314 (Version 1)
Quarter: 2013Q2

REPORT INFORMATION
  Report Type: Spontaneous
  Country: BR (occurrence: BR)
  Receive Date: 20130513
  Receipt Date: 20130513
  Transmission Date: 20140414
  Serious: Yes (Hospitalization)
  Sender: FDA-Public Use
  Company Number: BR-PFIZER INC-2013141235

PATIENT
  Age: 67 Year
  Sex: Male

DRUGS (2)
  1. XALATAN [Suspect]
     Indication: GLAUCOMA
     Dosage: 3 UG (1 DROP IN EACH EYE), EVERY 12 HOURS
     Route: 047
     Dates: start: 2010
  2. XALATAN [Suspect]
     Indication: CATARACT

REACTIONS (3)
  - Glaucoma [Unknown]
  - Cataract [Unknown]
  - Off label use [Not Recovered/Not Resolved]
